FAERS Safety Report 14768290 (Version 3)
Quarter: 2019Q2

REPORT INFORMATION
  Report Type: Spontaneous
  Country: NO (occurrence: NO)
  Receive Date: 20180417
  Receipt Date: 20190611
  Transmission Date: 20190711
  Serious: Yes (Life-Threatening, Hospitalization, Other)
  Sender: FDA-Public Use
  Company Number: NO-FERRINGPH-2018FE01701

PATIENT

DRUGS (5)
  1. ORGALUTRAN [Suspect]
     Active Substance: GANIRELIX ACETATE
     Indication: PRODUCT USED FOR UNKNOWN INDICATION
     Route: 065
  2. PUREGON                            /01348901/ [Suspect]
     Active Substance: FOLLITROPIN
     Indication: HORMONE THERAPY
     Dosage: 375 IU, UNK
     Route: 065
  3. MENOPUR [Suspect]
     Active Substance: FOLLITROPIN\LUTEINIZING HORMONE
     Indication: ASSISTED FERTILISATION
     Dosage: 150 IU, UNK
     Route: 065
     Dates: start: 20161125
  4. MENOPUR [Suspect]
     Active Substance: FOLLITROPIN\LUTEINIZING HORMONE
     Dosage: 75 IU, DAILY
     Route: 065
     Dates: start: 20161003, end: 20161006
  5. FOLLICLE STIMULATING HORMONE, RECOMBINANT [Suspect]
     Active Substance: FOLLITROPIN
     Indication: ASSISTED FERTILISATION
     Dosage: 375 IU, UNK
     Route: 065
     Dates: start: 20161125

REACTIONS (1)
  - Multiple sclerosis relapse [Recovered/Resolved]

NARRATIVE: CASE EVENT DATE: 20161128
